FAERS Safety Report 7744168-8 (Version None)
Quarter: 2011Q3

REPORT INFORMATION
  Report Type: 
  Country: None (occurrence: None)
  Receive Date: 20110912
  Receipt Date: 20110905
  Transmission Date: 20111222
  Serious: Yes (Other)
  Sender: FDA-Public Use
  Company Number: GB-PFIZER INC-2011207624

PATIENT
  Age: 74 Year

DRUGS (8)
  1. TRETINOIN [Suspect]
     Indication: ACUTE MYELOID LEUKAEMIA
     Dosage: UNK
     Dates: start: 20110712
  2. SANDO K [Concomitant]
     Dosage: UNK
  3. GEMTUZUMAB OZOGAMICIN [Suspect]
     Indication: MYELODYSPLASTIC SYNDROME
  4. IDARUBICIN HCL [Suspect]
     Indication: ACUTE MYELOID LEUKAEMIA
     Dosage: UNK
     Dates: start: 20110712
  5. DEXAMETHASONE [Concomitant]
     Dosage: 2 MG, UNK
  6. GEMTUZUMAB OZOGAMICIN [Suspect]
     Indication: ACUTE MYELOID LEUKAEMIA
     Dosage: 6 MG/M2, UNK
     Dates: start: 20110712
  7. IDARUBICIN HCL [Suspect]
     Indication: MYELODYSPLASTIC SYNDROME
  8. TRETINOIN [Suspect]
     Indication: MYELODYSPLASTIC SYNDROME

REACTIONS (1)
  - ALANINE AMINOTRANSFERASE INCREASED [None]
